FAERS Safety Report 7414680-X (Version None)
Quarter: 2011Q2

REPORT INFORMATION
  Report Type: 
  Country: None (occurrence: None)
  Receive Date: 20110414
  Receipt Date: 20091114
  Transmission Date: 20111010
  Serious: Yes (Hospitalization, Other)
  Sender: FDA-Public Use
  Company Number: US-BAYER-200939332NA

PATIENT
  Age: 61 Year
  Sex: Male
  Weight: 97.506 kg

DRUGS (26)
  1. TRASYLOL [Suspect]
     Indication: CORONARY ARTERY BYPASS
     Dosage: 199, FOLLOWED BY 50CC/HR
     Route: 042
     Dates: start: 20070925, end: 20070925
  2. NITROGLYCERIN [Concomitant]
     Dosage: 132.3 MCG/MINUTE
     Route: 042
     Dates: start: 20070919
  3. TYGACIL [Concomitant]
     Dosage: 100 MG, UNK
     Route: 042
     Dates: start: 20070920
  4. METOPROLOL TARTRATE [Concomitant]
  5. VASOTEC [Concomitant]
  6. PLAVIX [Concomitant]
     Dosage: 75 MG, UNK
     Route: 048
  7. HEPARIN [Concomitant]
     Dosage: 10000 U, UNK
     Route: 042
     Dates: start: 20070925
  8. NITROGLYCERIN [Concomitant]
     Dosage: 0.6 MG, UNK
     Route: 048
  9. GLYBURIDE [Concomitant]
     Dosage: 2.5 MG, UNK
     Route: 048
  10. LASIX [Concomitant]
     Dosage: 40 MG, UNK
     Route: 042
     Dates: start: 20070925
  11. ALBUMIN (HUMAN) [Concomitant]
     Dosage: 250 ML, UNK
     Route: 042
     Dates: start: 20070925
  12. LOVENOX [Concomitant]
     Dosage: 30 MG, UNK
     Route: 058
  13. LEXAPRO [Concomitant]
     Dosage: 20 MG, UNK
     Route: 048
  14. LASIX [Concomitant]
     Dosage: 40 MG, UNK
     Route: 048
  15. NEO-SYNEPHRINOL [Concomitant]
     Dosage: 600 MG, UNK
     Route: 042
     Dates: start: 20070925
  16. ACETYLSALICYLIC ACID SRT [Concomitant]
     Dosage: 81 MG, UNK
     Route: 048
  17. LIDOCAINE [Concomitant]
     Dosage: 100 MG, UNK
     Route: 042
     Dates: start: 20070925
  18. VERSED [Concomitant]
     Dosage: 2 MG, UNK
     Route: 042
     Dates: start: 20070925
  19. DOBUTREX [Concomitant]
     Dosage: 3MCG/KG/MINUTE
     Route: 042
     Dates: start: 20070925
  20. REGULAR INSULIN [Concomitant]
     Dosage: SLIDING SCALE
     Route: 058
     Dates: start: 20070920
  21. PROTAMINE SULFATE [Concomitant]
     Dosage: 700 MG, UNK
     Route: 042
     Dates: start: 20070925
  22. PROTAMINE SULFATE [Concomitant]
     Dosage: 200 MG, UNK
     Route: 042
     Dates: start: 20070925
  23. LIPITOR [Concomitant]
     Dosage: 40 MG, UNK
     Route: 048
  24. HEPARIN [Concomitant]
     Dosage: 40000 UNITS
     Route: 042
     Dates: start: 20070925
  25. BLOOD SUBSTITUTES AND PLASMA PROTEIN FRACTION [Concomitant]
     Dosage: 595 ML, UNK
     Route: 042
     Dates: start: 20070925
  26. ZINACEF [Concomitant]
     Dosage: 1.5 G, UNK
     Route: 042
     Dates: start: 20070925

REACTIONS (11)
  - RENAL INJURY [None]
  - UNEVALUABLE EVENT [None]
  - ANHEDONIA [None]
  - RENAL FAILURE [None]
  - RENAL IMPAIRMENT [None]
  - FEAR [None]
  - INJURY [None]
  - ANXIETY [None]
  - EMOTIONAL DISTRESS [None]
  - STRESS [None]
  - PAIN [None]
